FAERS Safety Report 6933701-1 (Version None)
Quarter: 2010Q3

REPORT INFORMATION
  Report Type: 
  Country: None (occurrence: None)
  Receive Date: 20100820
  Receipt Date: 20100817
  Transmission Date: 20110219
  Serious: Yes (Death, Life-Threatening)
  Sender: FDA-Public Use
  Company Number: US-ASTRAZENECA-2010SE38582

PATIENT
  Age: 22421 Day
  Sex: Male

DRUGS (9)
  1. ROSUVASTATIN [Suspect]
     Route: 048
     Dates: start: 20100614, end: 20100707
  2. BRIVANIB ALANINATE [Suspect]
     Indication: GASTROINTESTINAL CANCER METASTATIC
     Route: 048
     Dates: start: 20100623, end: 20100704
  3. FLUOROURACIL [Suspect]
     Indication: GASTROINTESTINAL CANCER METASTATIC
     Route: 042
     Dates: start: 20100622, end: 20100624
  4. LEUCOVORIN CALCIUM [Suspect]
     Indication: GASTROINTESTINAL CANCER METASTATIC
     Route: 042
     Dates: start: 20100622, end: 20100622
  5. ASPIRIN [Concomitant]
     Dates: start: 20040601, end: 20100707
  6. METFORMIN [Concomitant]
     Dates: start: 20040601, end: 20100707
  7. GLIMEPIRIDE [Concomitant]
     Dates: start: 20040601, end: 20100705
  8. PERINDOPRIL [Concomitant]
     Dates: start: 20040601, end: 20100707
  9. ZOPICLONE [Concomitant]
     Dates: start: 20050201, end: 20100728

REACTIONS (8)
  - DEHYDRATION [None]
  - DISEASE PROGRESSION [None]
  - GASTROINTESTINAL CARCINOMA [None]
  - HEPATIC FAILURE [None]
  - HEPATORENAL SYNDROME [None]
  - HYPOGLYCAEMIA [None]
  - RENAL FAILURE ACUTE [None]
  - RENAL TUBULAR NECROSIS [None]
